FAERS Safety Report 25066393 (Version 5)
Quarter: 2025Q4

REPORT INFORMATION
  Report Type: Report from Study
  Country: EU (occurrence: EU)
  Receive Date: 20250312
  Receipt Date: 20251106
  Transmission Date: 20260117
  Serious: Yes (Hospitalization)
  Sender: ABBVIE
  Company Number: EU-ABBVIE-5718731

PATIENT
  Age: 76 Year
  Sex: Female
  Weight: 55 kg

DRUGS (4)
  1. CARBIDOPA\LEVODOPA [Suspect]
     Active Substance: CARBIDOPA\LEVODOPA
     Indication: Parkinson^s disease
     Dosage: DECREASE THE BASELINE DOSE TO 0.30 ML/H; 240 MG/ML + 12 MG/ML SOLUCION PARA PERFUSION
     Route: 058
     Dates: start: 2024, end: 20250312
  2. CARBIDOPA\LEVODOPA [Suspect]
     Active Substance: CARBIDOPA\LEVODOPA
     Dosage: 240 MG/ML + 12 MG/ML SOLUCION PARA PERFUSION.?LAST ADMIN DATE-2024
     Route: 058
     Dates: start: 20240305
  3. CARBIDOPA\LEVODOPA [Suspect]
     Active Substance: CARBIDOPA\LEVODOPA
     Dosage: DOSES OF 0.28 ML/H FOR 12 HOURS. A HIGH FLOW OF 0.30 ML/H AND A LOW FLOW OF 0.26 ML/H
     Route: 058
     Dates: start: 20250312
  4. RIVASTIGMINE [Concomitant]
     Active Substance: RIVASTIGMINE
     Indication: Product used for unknown indication

REACTIONS (13)
  - Urinary tract infection [Recovering/Resolving]
  - Erythema [Recovered/Resolved]
  - Dehydration [Unknown]
  - Renal disorder [Recovered/Resolved]
  - Hallucination [Recovered/Resolved]
  - Constipation [Recovered/Resolved]
  - Dermatitis allergic [Recovered/Resolved]
  - Hallucination [Recovered/Resolved]
  - Insomnia [Not Recovered/Not Resolved]
  - Dyskinesia [Not Recovered/Not Resolved]
  - Infection [Unknown]
  - Poor quality sleep [Unknown]
  - Restlessness [Not Recovered/Not Resolved]

NARRATIVE: CASE EVENT DATE: 20240301
